FAERS Safety Report 12115421 (Version 1)
Quarter: 2016Q1

REPORT INFORMATION
  Report Type: Spontaneous
  Country: JP (occurrence: JP)
  Receive Date: 20160225
  Receipt Date: 20160225
  Transmission Date: 20160526
  Serious: Yes (Other)
  Sender: FDA-Public Use
  Company Number: JP-PFIZER INC-2016098182

PATIENT
  Sex: Male

DRUGS (7)
  1. SOLANAX [Suspect]
     Active Substance: ALPRAZOLAM
     Route: 048
  2. PRIMPERAN [Concomitant]
     Active Substance: METOCLOPRAMIDE HYDROCHLORIDE
     Indication: ABDOMINAL DISCOMFORT
     Route: 048
  3. RIZE [Concomitant]
     Active Substance: CLOTIAZEPAM
     Dosage: AN UNSPECIFIED DOSE THREE TIMES DAILY
     Route: 048
  4. JZOLOFT [Suspect]
     Active Substance: SERTRALINE HYDROCHLORIDE
     Route: 048
  5. DEPAS [Concomitant]
     Active Substance: ETIZOLAM
     Dosage: AN UNSPECIFIED DOSE THREE TIMES DAILY
     Route: 048
  6. WYPAX [Suspect]
     Active Substance: LORAZEPAM
     Route: 048
  7. HALCION [Suspect]
     Active Substance: TRIAZOLAM
     Route: 048

REACTIONS (8)
  - Headache [Unknown]
  - Social avoidant behaviour [Unknown]
  - Drug intolerance [Unknown]
  - Dizziness [Unknown]
  - Diarrhoea [Unknown]
  - Dyspepsia [Unknown]
  - Disease progression [Unknown]
  - Drug dependence [Unknown]
